FAERS Safety Report 7372547-X (Version None)
Quarter: 2011Q1

REPORT INFORMATION
  Report Type: 
  Country: None (occurrence: None)
  Receive Date: 20110315
  Receipt Date: 20101018
  Transmission Date: 20110831
  Serious: Yes (Hospitalization)
  Sender: FDA-Public Use
  Company Number: 2010PV000074

PATIENT
  Age: 6 Year
  Sex: Male

DRUGS (3)
  1. DEXAMETHASONE [Concomitant]
  2. DEPOCYT [Suspect]
     Indication: ACUTE LYMPHOCYTIC LEUKAEMIA
     Dosage: 34 MG;9 DOSES;INTH
     Route: 037
     Dates: start: 20091125, end: 20100616
  3. MERCAPTOPURINE [Concomitant]

REACTIONS (3)
  - ARACHNOIDITIS [None]
  - NUTRITIONAL CONDITION ABNORMAL [None]
  - INTRACRANIAL PRESSURE INCREASED [None]
